FAERS Safety Report 6297795-1 (Version None)
Quarter: 2009Q3

REPORT INFORMATION
  Report Type: 
  Country: None (occurrence: None)
  Receive Date: 20090805
  Receipt Date: 20090727
  Transmission Date: 20100115
  Serious: Yes (Other)
  Sender: FDA-Public Use
  Company Number: TR-PFIZER INC-2009227846

PATIENT
  Age: 59 Year

DRUGS (2)
  1. SPIRONOLACTONE [Suspect]
     Dosage: UNK
  2. DIGOXIN [Suspect]
     Dosage: UNK

REACTIONS (8)
  - BEREAVEMENT REACTION [None]
  - BLOOD OESTROGEN INCREASED [None]
  - DEPRESSION [None]
  - ERECTILE DYSFUNCTION [None]
  - GENDER IDENTITY DISORDER [None]
  - GYNAECOMASTIA [None]
  - OEDEMA [None]
  - SUICIDAL IDEATION [None]
